FAERS Safety Report 5811632-8 (Version None)
Quarter: 2008Q3

REPORT INFORMATION
  Report Type: 
  Country: None (occurrence: None)
  Receive Date: 20080711
  Receipt Date: 20080711
  Transmission Date: 20090109
  Serious: Yes (Disabling)
  Sender: FDA-Public Use
  Company Number: None

PATIENT
  Age: 67 Year
  Sex: Female
  Weight: 72.5755 kg

DRUGS (1)
  1. CIPROFLOXACIN [Suspect]
     Indication: PNEUMONIA
     Dosage: 1 TABLET TWICE DAILY ORAL
     Route: 048
     Dates: start: 20080501, end: 20080510

REACTIONS (2)
  - AGEUSIA [None]
  - ANOSMIA [None]
